FAERS Safety Report 4939436-9 (Version None)
Quarter: 2006Q1

REPORT INFORMATION
  Report Type: 
  Country: None (occurrence: None)
  Receive Date: 20060310
  Receipt Date: 20060221
  Transmission Date: 20060701
  Serious: Yes (Death, Other)
  Sender: FDA-Public Use
  Company Number: JP-BRISTOL-MYERS SQUIBB COMPANY-13291315

PATIENT
  Age: 58 Year
  Sex: Female

DRUGS (7)
  1. TAXOL [Suspect]
     Indication: NON-SMALL CELL LUNG CANCER
     Route: 042
     Dates: start: 20060206, end: 20060206
  2. PARAPLATIN [Suspect]
     Indication: NON-SMALL CELL LUNG CANCER
     Route: 042
     Dates: start: 20060206, end: 20060206
  3. RADIOTHERAPY [Concomitant]
     Indication: NON-SMALL CELL LUNG CANCER
     Dates: start: 20051206, end: 20060112
  4. VENA [Concomitant]
     Indication: PREMEDICATION
     Route: 042
     Dates: start: 20051205, end: 20060206
  5. ZOFRAN [Concomitant]
     Indication: PREMEDICATION
     Route: 042
     Dates: start: 20051205, end: 20060206
  6. DECADRON SRC [Concomitant]
     Indication: PREMEDICATION
     Route: 042
     Dates: start: 20051205, end: 20060206
  7. ZANTAC [Concomitant]
     Indication: PREMEDICATION
     Route: 042
     Dates: start: 20051205, end: 20060206

REACTIONS (4)
  - METABOLIC ACIDOSIS [None]
  - PLATELET COUNT DECREASED [None]
  - SHOCK [None]
  - WHITE BLOOD CELL COUNT DECREASED [None]
